FAERS Safety Report 22072280 (Version 1)
Quarter: 2023Q1

REPORT INFORMATION
  Report Type: Report from Study
  Country: CA (occurrence: CA)
  Receive Date: 20230308
  Receipt Date: 20230308
  Transmission Date: 20230417
  Serious: Yes (Other)
  Sender: FDA-Public Use
  Company Number: CA-JNJFOC-20230254334

PATIENT
  Age: 34 Year
  Sex: Female

DRUGS (1)
  1. REMICADE [Suspect]
     Active Substance: INFLIXIMAB
     Indication: Colitis ulcerative
     Dosage: ON 03-MAR-2023, THE PATIENT RECEIVED 5TH INFLIXIMAB INFUSION AT DOSE OF 400 MG AND PARTIAL MAYO COMP
     Route: 042
     Dates: start: 20221004

REACTIONS (2)
  - Colitis ulcerative [Unknown]
  - COVID-19 [Recovering/Resolving]

NARRATIVE: CASE EVENT DATE: 20230201
